FAERS Safety Report 4591684-6 (Version None)
Quarter: 2005Q1

REPORT INFORMATION
  Report Type: 
  Country: None (occurrence: None)
  Receive Date: 20050223
  Receipt Date: 20050223
  Transmission Date: 20050727
  Serious: Yes (Death)
  Sender: FDA-Public Use
  Company Number: None

PATIENT
  Age: 72 Year
  Sex: Female

DRUGS (1)
  1. VIOXX [Suspect]

REACTIONS (4)
  - CONTRAST MEDIA REACTION [None]
  - DIVERTICULUM INTESTINAL HAEMORRHAGIC [None]
  - HYPERSENSITIVITY [None]
  - RECTAL HAEMORRHAGE [None]
